FAERS Safety Report 19443206 (Version 1)
Quarter: 2021Q2

REPORT INFORMATION
  Report Type: Spontaneous
  Country: GB (occurrence: GB)
  Receive Date: 20210621
  Receipt Date: 20210621
  Transmission Date: 20210717
  Serious: Yes (Other)
  Sender: FDA-Public Use
  Company Number: GB-SA-2021SA194931

PATIENT
  Age: 27 Year
  Sex: Female
  Weight: 57.15 kg

DRUGS (4)
  1. SERTRALINE HYDROCHLORIDE. [Concomitant]
     Active Substance: SERTRALINE HYDROCHLORIDE
     Indication: ILL-DEFINED DISORDER
  2. CERELLE [Concomitant]
     Active Substance: DESOGESTREL
     Indication: ILL-DEFINED DISORDER
  3. AMITRIPTYLINE HYDROCHLORIDE. [Concomitant]
     Active Substance: AMITRIPTYLINE HYDROCHLORIDE
     Indication: ILL-DEFINED DISORDER
  4. FEXOFENADINE HYDROCHLORIDE. [Suspect]
     Active Substance: FEXOFENADINE HYDROCHLORIDE
     Indication: MULTIPLE ALLERGIES
     Dosage: 180MG
     Route: 048

REACTIONS (1)
  - Acne cystic [Not Recovered/Not Resolved]
